FAERS Safety Report 10187419 (Version 1)
Quarter: 2014Q2

REPORT INFORMATION
  Report Type: Spontaneous
  Country: GB (occurrence: GB)
  Receive Date: 20140522
  Receipt Date: 20140522
  Transmission Date: 20141212
  Serious: Yes (Other)
  Sender: FDA-Public Use
  Company Number: GB-009507513-1405GBR009196

PATIENT
  Age: 54 Year
  Sex: Male

DRUGS (2)
  1. NASONEX [Suspect]
     Indication: RHINITIS ALLERGIC
     Route: 045
  2. BECONASE [Suspect]
     Indication: RHINITIS ALLERGIC
     Route: 045

REACTIONS (5)
  - Chorioretinopathy [Recovered/Resolved with Sequelae]
  - Metamorphopsia [Not Recovered/Not Resolved]
  - Visual acuity reduced [Not Recovered/Not Resolved]
  - Vision blurred [Not Recovered/Not Resolved]
  - Drug effect decreased [Unknown]
